FAERS Safety Report 9853788 (Version 1)
Quarter: 2014Q1

REPORT INFORMATION
  Report Type: Spontaneous
  Country: US (occurrence: US)
  Receive Date: 20140129
  Receipt Date: 20140129
  Transmission Date: 20141002
  Serious: No
  Sender: FDA-Public Use
  Company Number: US-GLAXOSMITHKLINE-A1036365A

PATIENT
  Age: 62 Year
  Sex: Female
  Weight: 60.9 kg

DRUGS (2)
  1. WELLBUTRIN XL [Suspect]
     Indication: DEPRESSION
     Dosage: 300MG PER DAY
     Route: 048
  2. PREDNISONE [Concomitant]

REACTIONS (3)
  - Depression [Unknown]
  - Impulsive behaviour [Unknown]
  - Feeling abnormal [Unknown]
